FAERS Safety Report 7421443-8 (Version None)
Quarter: 2011Q2

REPORT INFORMATION
  Report Type: 
  Country: None (occurrence: None)
  Receive Date: 20110418
  Receipt Date: 20110405
  Transmission Date: 20111010
  Serious: Yes (Hospitalization)
  Sender: FDA-Public Use
  Company Number: CA-JNJFOC-20110402663

PATIENT
  Sex: Female

DRUGS (6)
  1. PANTOPRAZOLE SODIUM [Concomitant]
  2. VENTOLIN [Concomitant]
  3. CELEXA [Concomitant]
  4. REMICADE [Suspect]
     Route: 042
  5. REMICADE [Suspect]
     Indication: COLITIS ULCERATIVE
     Route: 042
  6. ADVAIR DISKUS 100/50 [Concomitant]

REACTIONS (1)
  - ANKLE FRACTURE [None]
